FAERS Safety Report 7743101-2 (Version None)
Quarter: 2011Q3

REPORT INFORMATION
  Report Type: 
  Country: None (occurrence: None)
  Receive Date: 20110912
  Receipt Date: 20110906
  Transmission Date: 20111222
  Serious: Yes (Other)
  Sender: FDA-Public Use
  Company Number: FR-ROCHE-797095

PATIENT
  Age: 69 Year
  Sex: Male

DRUGS (1)
  1. BEVACIZUMAB [Suspect]
     Indication: RADIATION NECROSIS
     Dosage: FORM: INFUSION
     Route: 042
     Dates: start: 20090101

REACTIONS (3)
  - KERATITIS HERPETIC [None]
  - ULCERATIVE KERATITIS [None]
  - TRANSIENT ISCHAEMIC ATTACK [None]
